FAERS Safety Report 12162027 (Version 1)
Quarter: 2016Q1

REPORT INFORMATION
  Report Type: Spontaneous
  Country: FR (occurrence: FR)
  Receive Date: 20160309
  Receipt Date: 20160309
  Transmission Date: 20160526
  Serious: Yes (Other)
  Sender: FDA-Public Use
  Company Number: FR-ROCHE-1722220

PATIENT
  Sex: Female

DRUGS (8)
  1. AROMASINE [Concomitant]
     Active Substance: EXEMESTANE
     Route: 065
     Dates: start: 201303, end: 201311
  2. TAXOL [Concomitant]
     Active Substance: PACLITAXEL
     Route: 065
     Dates: start: 201205, end: 201209
  3. AFINITOR [Concomitant]
     Active Substance: EVEROLIMUS
     Route: 065
     Dates: start: 201303, end: 201311
  4. AVASTIN [Suspect]
     Active Substance: BEVACIZUMAB
     Route: 065
     Dates: start: 201209, end: 201302
  5. NAVELBINE [Suspect]
     Active Substance: VINORELBINE TARTRATE
     Indication: BREAST CANCER METASTATIC
     Route: 065
     Dates: start: 201312, end: 201401
  6. AVASTIN [Suspect]
     Active Substance: BEVACIZUMAB
     Indication: BREAST CANCER METASTATIC
     Route: 065
     Dates: start: 201205, end: 201209
  7. AVASTIN [Suspect]
     Active Substance: BEVACIZUMAB
     Route: 065
     Dates: start: 201312, end: 201401
  8. FEMARA [Concomitant]
     Active Substance: LETROZOLE
     Route: 065
     Dates: start: 201209, end: 201302

REACTIONS (1)
  - Cardiotoxicity [Unknown]

NARRATIVE: CASE EVENT DATE: 201401
